FAERS Safety Report 8369574-2 (Version None)
Quarter: 2012Q2

REPORT INFORMATION
  Report Type: 
  Country: None (occurrence: None)
  Receive Date: 20120518
  Receipt Date: 20120503
  Transmission Date: 20120825
  Serious: Yes (Hospitalization, Other)
  Sender: FDA-Public Use
  Company Number: US-MYLANLABS-2009AC000152

PATIENT
  Sex: Male
  Weight: 88 kg

DRUGS (41)
  1. WARFARIN SODIUM [Concomitant]
  2. FLURAZEPAM [Concomitant]
  3. ZETIA [Concomitant]
  4. ZOLOFT [Concomitant]
  5. ASPIRIN [Concomitant]
     Route: 048
  6. LOVENOX [Concomitant]
  7. ATIVAN [Concomitant]
  8. TYLENOL PM [Concomitant]
  9. DIGOXIN [Suspect]
     Indication: PRODUCT USED FOR UNKNOWN INDICATION
     Route: 048
     Dates: start: 20020612, end: 20090210
  10. CEFADROXIL [Concomitant]
  11. AMOXICILLIN [Concomitant]
  12. PRAVACHOL [Concomitant]
  13. OXYCODONE HCL [Concomitant]
  14. ACETAMINOPHEN [Concomitant]
  15. GENTAK [Concomitant]
  16. CEFEPIME [Concomitant]
     Dosage: FOR 7 DAYS
     Route: 042
  17. LOPRESSOR [Concomitant]
     Route: 048
  18. PRILOSEC [Concomitant]
  19. PROTONIX [Concomitant]
  20. CARDIZEM [Concomitant]
  21. THIAMINE [Concomitant]
     Route: 048
  22. PROPOXYPHENE NAPSYLATE W/ ACETAMINOPHEN [Concomitant]
  23. AMBIEN [Concomitant]
  24. PRILOSEC [Concomitant]
  25. LEVAQUIN [Concomitant]
     Dosage: FOR SEVEN DAYS
  26. ZOCOR [Concomitant]
     Route: 048
  27. TOBRADEX [Concomitant]
  28. PREDNISONE [Concomitant]
  29. LASIX [Concomitant]
  30. HYDROCODONE BITARTRATE AND ACETAMINOPHEN [Concomitant]
  31. TEMAZEPAM [Concomitant]
  32. AMOXI TRIPTYLIN W/POTASSIUM CLAVULATE [Concomitant]
  33. M.V.I. [Concomitant]
     Route: 048
  34. ULTRAM [Concomitant]
  35. METOPROLOL [Concomitant]
  36. PLAVIX [Concomitant]
     Route: 048
  37. LISINOPRIL [Concomitant]
     Route: 048
  38. SINGULAIR [Concomitant]
     Route: 048
  39. LEXAPRO [Concomitant]
  40. CLOPIDOGREL [Concomitant]
  41. THIAMINE [Concomitant]

REACTIONS (73)
  - CARDIOVERSION [None]
  - CORONARY ARTERY INSUFFICIENCY [None]
  - POSTOPERATIVE FEVER [None]
  - CONFUSION POSTOPERATIVE [None]
  - LEUKOCYTOSIS [None]
  - PNEUMONIA [None]
  - ENDOTRACHEAL INTUBATION [None]
  - HYPERLIPIDAEMIA [None]
  - PYREXIA [None]
  - CARDIAC DISORDER [None]
  - ILL-DEFINED DISORDER [None]
  - CARDIOMYOPATHY [None]
  - CATHETERISATION CARDIAC [None]
  - CORONARY REVASCULARISATION [None]
  - ASPIRATION [None]
  - GASTROOESOPHAGEAL REFLUX DISEASE [None]
  - LOCAL SWELLING [None]
  - INJURY [None]
  - POSTOPERATIVE RESPIRATORY DISTRESS [None]
  - MECHANICAL VENTILATION [None]
  - MITRAL VALVE REPAIR [None]
  - HYPERTENSION [None]
  - CONFUSIONAL STATE [None]
  - WEANING FAILURE [None]
  - HYPOTENSION [None]
  - ANAEMIA [None]
  - ENTEROBACTER INFECTION [None]
  - GROIN PAIN [None]
  - HEPATIC ENZYME INCREASED [None]
  - NAUSEA [None]
  - DYSPNOEA [None]
  - HEART RATE IRREGULAR [None]
  - CARDIAC MURMUR [None]
  - CORONARY ARTERY DISEASE [None]
  - LEFT VENTRICULAR DYSFUNCTION [None]
  - MITRAL VALVE INCOMPETENCE [None]
  - VENTRICULAR EXTRASYSTOLES [None]
  - CARDIAC FAILURE CONGESTIVE [None]
  - PACKED RED BLOOD CELL TRANSFUSION [None]
  - PRESYNCOPE [None]
  - ELECTROCARDIOGRAM ST-T CHANGE [None]
  - PERICARDIAL EFFUSION [None]
  - ANGINA UNSTABLE [None]
  - CHEST X-RAY ABNORMAL [None]
  - ASTHENIA [None]
  - POST PROCEDURAL HAEMORRHAGE [None]
  - AGITATION POSTOPERATIVE [None]
  - POST PROCEDURAL PNEUMONIA [None]
  - INGUINAL HERNIA [None]
  - HERNIA REPAIR [None]
  - CHEST DISCOMFORT [None]
  - MITRAL VALVE PROLAPSE [None]
  - PALPITATIONS [None]
  - FATIGUE [None]
  - ATRIAL FIBRILLATION [None]
  - ECHOCARDIOGRAM ABNORMAL [None]
  - CARDIAC OUTPUT DECREASED [None]
  - CARDIAC FUNCTION DISTURBANCE POSTOPERATIVE [None]
  - RESPIRATORY DISTRESS [None]
  - ATELECTASIS [None]
  - PULMONARY OEDEMA [None]
  - CORONARY ANGIOPLASTY [None]
  - DIZZINESS [None]
  - CORONARY ARTERIAL STENT INSERTION [None]
  - PLEURAL EFFUSION [None]
  - RALES [None]
  - EJECTION FRACTION DECREASED [None]
  - PROCEDURAL HYPOTENSION [None]
  - BACTERIAL TEST POSITIVE [None]
  - HYPERCHOLESTEROLAEMIA [None]
  - CORONARY ARTERY BYPASS [None]
  - PANIC ATTACK [None]
  - SINUS TACHYCARDIA [None]
